FAERS Safety Report 4556710-9 (Version None)
Quarter: 2005Q1

REPORT INFORMATION
  Report Type: 
  Country: None (occurrence: None)
  Receive Date: 20050118
  Receipt Date: 20050106
  Transmission Date: 20050727
  Serious: Yes (Hospitalization)
  Sender: FDA-Public Use
  Company Number: T03-USA-02860-01

PATIENT
  Age: 64 Year
  Sex: Male
  Weight: 62.5964 kg

DRUGS (11)
  1. MEMANTINE (OPEN LABEL, PHASE C) (MEMANTINE) [Suspect]
     Indication: DEMENTIA ALZHEIMER'S TYPE
     Dosage: 20 MG QD PO
     Route: 048
     Dates: start: 20030203
  2. MEMANTINE (OPEN LABEL, PHASE B) (MEMANTINE) [Suspect]
     Indication: DEMENTIA ALZHEIMER'S TYPE
     Dosage: 20 MG QD PO
     Route: 048
     Dates: start: 20020910, end: 20030202
  3. MEMANTINE (DOUBLE BLIND, PHASE A) (MEMANTINE) [Suspect]
     Indication: DEMENTIA ALZHEIMER'S TYPE
     Dosage: 2 TABELT BID PO
     Route: 048
     Dates: start: 20020710, end: 20020909
  4. ATORVASTATIN [Concomitant]
  5. VITAMIN E [Concomitant]
  6. GINKGO BILOBA [Concomitant]
  7. ASPIRIN [Concomitant]
  8. VITAMIN B COMPLEX CAP [Concomitant]
  9. FOLIC ACID [Concomitant]
  10. CALCIUM GLUCONATE [Concomitant]
  11. SERTRALINE HCL [Concomitant]

REACTIONS (6)
  - BENIGN PROSTATIC HYPERPLASIA [None]
  - BLADDER CANCER RECURRENT [None]
  - BLADDER OBSTRUCTION [None]
  - CHEST PAIN [None]
  - DIARRHOEA [None]
  - HEADACHE [None]
